FAERS Safety Report 7603330-5 (Version None)
Quarter: 2011Q3

REPORT INFORMATION
  Report Type: 
  Country: None (occurrence: None)
  Receive Date: 20110712
  Receipt Date: 20110629
  Transmission Date: 20111222
  Serious: Yes (Other)
  Sender: FDA-Public Use
  Company Number: PHHY2011DE58187

PATIENT
  Age: 64 Year
  Sex: Male

DRUGS (4)
  1. ZOMETA [Suspect]
     Route: 042
     Dates: start: 20050501, end: 20061001
  2. ALENDRONATE SODIUM [Suspect]
     Dates: start: 20061001, end: 20070803
  3. AREDIA [Suspect]
     Route: 042
     Dates: start: 19970801, end: 20050501
  4. CHEMOTHERAPEUTICS NOS [Concomitant]

REACTIONS (3)
  - OSTEONECROSIS OF JAW [None]
  - TOOTH DISORDER [None]
  - JAW FRACTURE [None]
